FAERS Safety Report 19652899 (Version 2)
Quarter: 2021Q3

REPORT INFORMATION
  Report Type: Spontaneous
  Country: CN (occurrence: CN)
  Receive Date: 20210803
  Receipt Date: 20210819
  Transmission Date: 20211014
  Serious: Yes (Other)
  Sender: FDA-Public Use
  Company Number: NVSC2021CN171590

PATIENT
  Sex: Female
  Weight: 45 kg

DRUGS (2)
  1. TRILEPTAL [Suspect]
     Active Substance: OXCARBAZEPINE
     Dosage: 1 DF, BID (HALF OF A TABLET AT NOON AND 1.5 TABLETS IN THE EVENING)
     Route: 048
  2. TRILEPTAL [Suspect]
     Active Substance: OXCARBAZEPINE
     Indication: EPILEPSY
     Dosage: 0.5 DF, BID (HALF OF A TABLET AT NOON AND 1.5 TABLETS IN THE EVENING)
     Route: 048

REACTIONS (4)
  - Product colour issue [Unknown]
  - Suspected counterfeit product [Unknown]
  - Epilepsy [Unknown]
  - Drug ineffective [Unknown]
